FAERS Safety Report 7311134-6 (Version None)
Quarter: 2011Q1

REPORT INFORMATION
  Report Type: 
  Country: None (occurrence: None)
  Receive Date: 20110224
  Receipt Date: 20110215
  Transmission Date: 20110831
  Serious: Yes (Other)
  Sender: FDA-Public Use
  Company Number: US-ROCHE-758585

PATIENT
  Sex: Female
  Weight: 54 kg

DRUGS (2)
  1. ACCUTANE [Suspect]
     Indication: ACNE
     Route: 065
     Dates: start: 19951010, end: 19960213
  2. ACCUTANE [Suspect]
     Route: 065
     Dates: end: 19960216

REACTIONS (14)
  - VOMITING [None]
  - CHAPPED LIPS [None]
  - INFLAMMATORY BOWEL DISEASE [None]
  - INJURY [None]
  - EMOTIONAL DISTRESS [None]
  - DEPRESSION [None]
  - PYREXIA [None]
  - ATTENTION DEFICIT/HYPERACTIVITY DISORDER [None]
  - DIARRHOEA [None]
  - VITAMIN B12 DEFICIENCY [None]
  - FATIGUE [None]
  - COLITIS ULCERATIVE [None]
  - ABDOMINAL PAIN [None]
  - WEIGHT DECREASED [None]
